FAERS Safety Report 8114160-2 (Version None)
Quarter: 2012Q1

REPORT INFORMATION
  Report Type: 
  Country: None (occurrence: None)
  Receive Date: 20120205
  Receipt Date: 20120201
  Transmission Date: 20120608
  Serious: Yes (Other)
  Sender: FDA-Public Use
  Company Number: GXKR2012DE000612

PATIENT
  Sex: Female
  Weight: 60 kg

DRUGS (1)
  1. METFORMIN HCL [Suspect]
     Indication: HYPERINSULINAEMIA
     Dosage: 500 MG, QD (1-0-0)
     Route: 048
     Dates: start: 20100901, end: 20120101

REACTIONS (11)
  - DYSPNOEA [None]
  - ASTHENIA [None]
  - MUSCULAR WEAKNESS [None]
  - NAUSEA [None]
  - CIRCULATORY COLLAPSE [None]
  - HYPOGLYCAEMIA [None]
  - HEADACHE [None]
  - VOMITING [None]
  - KETOACIDOSIS [None]
  - FATIGUE [None]
  - DIZZINESS [None]
